FAERS Safety Report 10179926 (Version 1)
Quarter: 2014Q2

REPORT INFORMATION
  Report Type: Spontaneous
  Country: US (occurrence: US)
  Receive Date: 20140519
  Receipt Date: 20140519
  Transmission Date: 20141212
  Serious: No
  Sender: FDA-Public Use
  Company Number: US-AMGEN INC.-USASP2013072551

PATIENT
  Age: 71 Year
  Sex: Female

DRUGS (8)
  1. PROLIA [Suspect]
     Indication: OSTEOPOROSIS POSTMENOPAUSAL
     Dosage: 60 MG, UNK
     Route: 065
     Dates: start: 20130909
  2. SYNTHROID [Concomitant]
     Indication: GOITRE
     Dosage: 0.25 MG, QD
  3. VICODIN [Concomitant]
     Indication: PAIN
     Dosage: UNK UNK, AS NECESSARY
  4. VITAMIN B 12 [Concomitant]
  5. FISH OIL [Concomitant]
  6. VITAMIN D                          /00107901/ [Concomitant]
     Dosage: 1000, BID
  7. STRONTIUM CITRATE [Concomitant]
  8. LORAZEPAM [Concomitant]
     Indication: SLEEP DISORDER
     Dosage: 0.5 MG, AS NECESSARY

REACTIONS (12)
  - Pain [Not Recovered/Not Resolved]
  - Musculoskeletal stiffness [Unknown]
  - Skin discolouration [Unknown]
  - Musculoskeletal chest pain [Not Recovered/Not Resolved]
  - Hot flush [Not Recovered/Not Resolved]
  - Limb discomfort [Unknown]
  - Thyroid disorder [Unknown]
  - Abdominal discomfort [Unknown]
  - Pruritus [Unknown]
  - Back pain [Not Recovered/Not Resolved]
  - Bone pain [Not Recovered/Not Resolved]
  - Pain in extremity [Not Recovered/Not Resolved]
